FAERS Safety Report 4537767-8 (Version None)
Quarter: 2004Q4

REPORT INFORMATION
  Report Type: 
  Country: None (occurrence: None)
  Receive Date: 20041224
  Receipt Date: 20041215
  Transmission Date: 20050328
  Serious: Yes (Other)
  Sender: FDA-Public Use
  Company Number: US-MERCK-0412USA02392

PATIENT
  Age: 9 Year
  Sex: Female

DRUGS (6)
  1. CANCIDAS [Suspect]
     Indication: FUNGAL INFECTION
     Route: 042
     Dates: start: 20030301
  2. VORICONAZOLE [Concomitant]
     Indication: FUNGAL INFECTION
     Route: 048
     Dates: start: 20030101, end: 20030101
  3. AMPHOTERICIN B AND CHOLESTEROL AND DISTEAROYLPHOSPHATIDYLGLYCEROL AND [Concomitant]
     Route: 065
     Dates: start: 20030201, end: 20030401
  4. CEFTRIAXONE SODIUM [Concomitant]
     Route: 042
     Dates: start: 20030101, end: 20030101
  5. SULFAMETHOXAZOLE AND TRIMETHOPRIM [Concomitant]
     Route: 042
     Dates: start: 20030101, end: 20030101
  6. GRANULOCYTE COLONY STIMULATING FACTOR (UNSPECIFIED) [Concomitant]
     Route: 065
     Dates: start: 20030201

REACTIONS (3)
  - PANCREATITIS [None]
  - PNEUMONIA [None]
  - THERAPY NON-RESPONDER [None]
